FAERS Safety Report 6011149-4 (Version None)
Quarter: 2008Q4

REPORT INFORMATION
  Report Type: 
  Country: None (occurrence: None)
  Receive Date: 20081216
  Receipt Date: 20081211
  Transmission Date: 20090506
  Serious: Yes (Other)
  Sender: FDA-Public Use
  Company Number: A0760162A

PATIENT
  Age: 17 Year
  Sex: Male

DRUGS (1)
  1. UREA HYDROGEN PEROXIDE (FORMULATION UNKNOWN) (UREA HYDROGEN PEROXIDE) [Suspect]
     Dosage: EAR DROPS

REACTIONS (4)
  - AURICULAR SWELLING [None]
  - DEAFNESS UNILATERAL [None]
  - EAR DISCOMFORT [None]
  - EAR PAIN [None]
